FAERS Safety Report 9319058 (Version 1)
Quarter: 2013Q2

REPORT INFORMATION
  Report Type: Spontaneous
  Country: US (occurrence: None)
  Receive Date: 20130529
  Receipt Date: 20130529
  Transmission Date: 20140414
  Serious: No
  Sender: FDA-Public Use
  Company Number: None

PATIENT
  Sex: 0

DRUGS (1)
  1. MYLAN [Suspect]

REACTIONS (3)
  - Product adhesion issue [None]
  - Product substitution issue [None]
  - Product quality issue [None]
